FAERS Safety Report 18682130 (Version 1)
Quarter: 2020Q4

REPORT INFORMATION
  Report Type: Spontaneous
  Country: US (occurrence: US)
  Receive Date: 20201230
  Receipt Date: 20201230
  Transmission Date: 20210114
  Serious: Yes (Death)
  Sender: FDA-Public Use
  Company Number: US-CELGENEUS-USA-20201207678

PATIENT
  Sex: Male

DRUGS (2)
  1. REVLIMID [Suspect]
     Active Substance: LENALIDOMIDE
     Indication: PERIPHERAL T-CELL LYMPHOMA UNSPECIFIED STAGE IV
     Dosage: 15 MILLIGRAM
     Route: 048
     Dates: start: 20200729, end: 20201207
  2. REVLIMID [Suspect]
     Active Substance: LENALIDOMIDE
     Indication: OFF LABEL USE

REACTIONS (1)
  - Peripheral T-cell lymphoma unspecified stage IV [Fatal]

NARRATIVE: CASE EVENT DATE: 2020
